FAERS Safety Report 4998441-7 (Version None)
Quarter: 2006Q2

REPORT INFORMATION
  Report Type: 
  Country: None (occurrence: None)
  Receive Date: 20060510
  Receipt Date: 20060324
  Transmission Date: 20061013
  Serious: Yes (Disabling)
  Sender: FDA-Public Use
  Company Number: GR-GLAXOSMITHKLINE-B0418099A

PATIENT
  Age: 4 Year
  Sex: Male

DRUGS (1)
  1. AMOXIL [Suspect]
     Indication: OTITIS MEDIA ACUTE
     Dosage: 500MG THREE TIMES PER DAY
     Route: 048
     Dates: start: 20060315, end: 20060323

REACTIONS (2)
  - PYREXIA [None]
  - URTICARIA GENERALISED [None]
